FAERS Safety Report 9268080 (Version 1)
Quarter: 2013Q2

REPORT INFORMATION
  Report Type: Report from Study
  Country: US (occurrence: US)
  Receive Date: 20130502
  Receipt Date: 20130502
  Transmission Date: 20140414
  Serious: Yes (Hospitalization)
  Sender: FDA-Public Use
  Company Number: US-ALEXION-A201201624

PATIENT
  Age: 16 Year
  Sex: 0

DRUGS (9)
  1. ECULIZUMAB [Suspect]
     Indication: HAEMOLYTIC URAEMIC SYNDROME
     Dosage: 1200 MG, Q2W
     Dates: start: 20091030
  2. PROGRAF [Concomitant]
     Indication: PROPHYLAXIS
     Dosage: 4 MG, QD  IN A.M
     Route: 048
     Dates: start: 20100303
  3. PROGRAF [Concomitant]
     Dosage: 5 MG, QD IN P.M.
  4. MYFORTIC [Concomitant]
     Indication: PROPHYLAXIS
     Dosage: 180 MG, BID
     Route: 048
     Dates: start: 20100302
  5. PREDNISONE [Concomitant]
     Indication: PROPHYLAXIS
     Dosage: 5 MG, QD
     Route: 048
     Dates: start: 20100119
  6. ZANTAC [Concomitant]
     Dosage: 150 MG, BID
  7. ENALAPRIL [Concomitant]
     Indication: HYPERTENSION
     Dosage: 20 MG, QD
     Dates: start: 20091020
  8. VEETIDS [Concomitant]
     Indication: PROPHYLAXIS
     Dosage: UNK
     Route: 048
     Dates: start: 20100215
  9. BACTRIM [Concomitant]
     Indication: PROPHYLAXIS
     Dosage: UNK
     Route: 048
     Dates: start: 20100202

REACTIONS (6)
  - Abdominal pain [Recovered/Resolved]
  - Gastrointestinal sounds abnormal [Not Recovered/Not Resolved]
  - Dehydration [Unknown]
  - Weight decreased [Recovered/Resolved]
  - Vomiting [Recovered/Resolved]
  - Diarrhoea [Recovered/Resolved]
